FAERS Safety Report 20076293 (Version 1)
Quarter: 2021Q4

REPORT INFORMATION
  Report Type: Spontaneous
  Country: IT (occurrence: IT)
  Receive Date: 20211116
  Receipt Date: 20211116
  Transmission Date: 20220303
  Serious: Yes (Other)
  Sender: FDA-Public Use
  Company Number: IT-UCBSA-2021053324

PATIENT
  Age: 71 Year
  Sex: Male

DRUGS (2)
  1. KEPPRA [Suspect]
     Active Substance: LEVETIRACETAM
     Indication: Status epilepticus
     Dosage: 3000 MILLIGRAM, ONCE DAILY (QD)
     Route: 042
  2. VALPROIC ACID [Suspect]
     Active Substance: VALPROIC ACID
     Indication: Status epilepticus
     Dosage: 2000 MILLIGRAM, ONCE DAILY (QD)
     Route: 042

REACTIONS (3)
  - Status epilepticus [Recovering/Resolving]
  - Multiple-drug resistance [Unknown]
  - Product use in unapproved indication [Unknown]
